FAERS Safety Report 6593014-7 (Version None)
Quarter: 2010Q1

REPORT INFORMATION
  Report Type: 
  Country: None (occurrence: None)
  Receive Date: 20100218
  Receipt Date: 20100218
  Transmission Date: 20100710
  Serious: Yes (Other)
  Sender: FDA-Public Use
  Company Number: None

PATIENT
  Sex: Female
  Weight: 58.6 kg

DRUGS (11)
  1. CLOZAPINE [Suspect]
     Indication: SCHIZOAFFECTIVE DISORDER
     Dosage: 100MG 300MG HS AM HS ORAL 100MG BID ORAL
     Route: 048
     Dates: start: 20090721, end: 20090822
  2. PIOGLITAZONE [Concomitant]
  3. TOLTERODINE LA [Concomitant]
  4. DIPHENHYDRAMINE HCL [Concomitant]
  5. METFORMIN HCL [Concomitant]
  6. PROPRANOLOL HYDROCHLORIDE [Concomitant]
  7. GEMFIBROZIL [Concomitant]
  8. SIMVASTATIN [Concomitant]
  9. LISINOPRIL [Concomitant]
  10. DOCUSATE [Concomitant]
  11. LORAZEPAM [Concomitant]

REACTIONS (5)
  - APLASIA PURE RED CELL [None]
  - HYPOTENSION [None]
  - REFUSAL OF TREATMENT BY PATIENT [None]
  - RENAL IMPAIRMENT [None]
  - TREATMENT NONCOMPLIANCE [None]
